FAERS Safety Report 5700585-9 (Version None)
Quarter: 2008Q2

REPORT INFORMATION
  Report Type: 
  Country: None (occurrence: None)
  Receive Date: 20080407
  Receipt Date: 20080327
  Transmission Date: 20081010
  Serious: Yes (Hospitalization)
  Sender: FDA-Public Use
  Company Number: 2008SP006130

PATIENT
  Age: 23 Year
  Sex: Male
  Weight: 99.43 kg

DRUGS (3)
  1. TEMODAR [Suspect]
     Indication: GLIOBLASTOMA MULTIFORME
     Dosage: 160 MG; QD; PO; PO
     Route: 048
     Dates: start: 20080220, end: 20080323
  2. TEMODAR [Suspect]
     Indication: GLIOBLASTOMA MULTIFORME
     Dosage: 160 MG; QD; PO; PO
     Route: 048
     Dates: start: 20080326
  3. DECADRON [Concomitant]

REACTIONS (9)
  - CEREBRAL ISCHAEMIA [None]
  - HYPOAESTHESIA [None]
  - NAUSEA [None]
  - NEOPLASM PROGRESSION [None]
  - NO THERAPEUTIC RESPONSE [None]
  - NUCLEAR MAGNETIC RESONANCE IMAGING BRAIN ABNORMAL [None]
  - PYREXIA [None]
  - SPEECH DISORDER [None]
  - VOMITING [None]
